FAERS Safety Report 18331793 (Version 2)
Quarter: 2021Q4

REPORT INFORMATION
  Report Type: Spontaneous
  Country: CA (occurrence: CA)
  Receive Date: 20200930
  Receipt Date: 20211011
  Transmission Date: 20220303
  Serious: Yes (Other)
  Sender: FDA-Public Use
  Company Number: CA-BAYER-2020-202587

PATIENT
  Sex: Male

DRUGS (1)
  1. RIVAROXABAN [Suspect]
     Active Substance: RIVAROXABAN
     Indication: Product used for unknown indication
     Dosage: UNK
     Route: 048

REACTIONS (4)
  - Helminthic infection [Unknown]
  - Rectal haemorrhage [Unknown]
  - Alopecia [Unknown]
  - Anaemia [Unknown]
